FAERS Safety Report 8371652-9 (Version None)
Quarter: 2012Q2

REPORT INFORMATION
  Report Type: 
  Country: None (occurrence: None)
  Receive Date: 20120518
  Receipt Date: 20120508
  Transmission Date: 20120825
  Serious: No
  Sender: FDA-Public Use
  Company Number: US-ASTRAZENECA-2012SE26243

PATIENT
  Age: 68 Year
  Sex: Male
  Weight: 106.1 kg

DRUGS (6)
  1. DIOVAN [Concomitant]
  2. CRESTOR [Suspect]
     Route: 048
     Dates: start: 20120101
  3. CRESTOR [Suspect]
     Indication: BLOOD CHOLESTEROL ABNORMAL
     Route: 048
     Dates: start: 20080101
  4. ULORIC [Concomitant]
  5. CRESTOR [Suspect]
     Route: 048
     Dates: start: 20100101, end: 20110501
  6. CRESTOR [Suspect]
     Route: 048

REACTIONS (8)
  - INSOMNIA [None]
  - ACCOMMODATION DISORDER [None]
  - DISTURBANCE IN ATTENTION [None]
  - INTENTIONAL DRUG MISUSE [None]
  - MYALGIA [None]
  - SOMNOLENCE [None]
  - COGNITIVE DISORDER [None]
  - PROSTATOMEGALY [None]
